FAERS Safety Report 6583341-1 (Version None)
Quarter: 2010Q1

REPORT INFORMATION
  Report Type: 
  Country: None (occurrence: None)
  Receive Date: 20100216
  Receipt Date: 20100210
  Transmission Date: 20100710
  Serious: Yes (Life-Threatening, Hospitalization)
  Sender: FDA-Public Use
  Company Number: US-ASTRAZENECA-2010SE04120

PATIENT
  Age: 87 Year
  Sex: Female
  Weight: 37 kg

DRUGS (11)
  1. PRILOSEC [Suspect]
     Indication: GASTROINTESTINAL HAEMORRHAGE
     Route: 042
     Dates: start: 20091213
  2. PRILOSEC OTC [Suspect]
     Route: 048
  3. E5564/PLACEBO [Suspect]
     Indication: SEPSIS
     Route: 042
     Dates: start: 20091211, end: 20091212
  4. E5564/PLACEBO [Suspect]
     Route: 042
     Dates: start: 20091212
  5. BENZYL BENZOATE [Suspect]
     Indication: ACARODERMATITIS
     Route: 061
     Dates: start: 20091213
  6. DOPAMINE HCL [Concomitant]
  7. CEFTAZIDIME PENTAHYDRATE [Concomitant]
  8. ALPRAZOLAM [Concomitant]
  9. DIOCTAHEDRAL SMECTITE [Concomitant]
  10. ZINC OXIDE [Concomitant]
  11. ACETAMINOPHEN [Concomitant]

REACTIONS (7)
  - ALLODYNIA [None]
  - CYANOSIS [None]
  - HYPOXIC ENCEPHALOPATHY [None]
  - PNEUMONIA [None]
  - RENAL FAILURE ACUTE [None]
  - SEPTIC SHOCK [None]
  - UROSEPSIS [None]
